FAERS Safety Report 6730669-8 (Version None)
Quarter: 2010Q2

REPORT INFORMATION
  Report Type: 
  Country: None (occurrence: None)
  Receive Date: 20100513
  Receipt Date: 20100427
  Transmission Date: 20101027
  Serious: Yes (Other)
  Sender: FDA-Public Use
  Company Number: 2010S1002665

PATIENT
  Age: 66 Year
  Sex: Female

DRUGS (3)
  1. PHOSPHOSODA FLAVOR NOT SPECIFIED [Suspect]
     Indication: COLONOSCOPY
     Dosage: 90 ML; TOTAL; PO
     Route: 048
     Dates: start: 20040628, end: 20040628
  2. ZYRTEC [Concomitant]
  3. ACCUPRIL [Concomitant]

REACTIONS (1)
  - RENAL IMPAIRMENT [None]
